FAERS Safety Report 12491435 (Version 4)
Quarter: 2017Q4

REPORT INFORMATION
  Report Type: Report from Study
  Country: JP (occurrence: JP)
  Receive Date: 20160623
  Receipt Date: 20171108
  Transmission Date: 20180320
  Serious: Yes (Hospitalization, Other)
  Sender: FDA-Public Use
  Company Number: JP-AMGEN-JPNNI2016081067

PATIENT
  Age: 69 Year
  Sex: Male

DRUGS (1)
  1. DARBEPOETIN ALFA [Suspect]
     Active Substance: DARBEPOETIN ALFA
     Indication: PRODUCT USED FOR UNKNOWN INDICATION
     Dosage: UNK
     Route: 042
     Dates: start: 20150724

REACTIONS (8)
  - Hospitalisation [Recovering/Resolving]
  - Fluid overload [Recovering/Resolving]
  - Bronchitis [Recovering/Resolving]
  - Hospitalisation [Recovering/Resolving]
  - Cataract [Recovering/Resolving]
  - Chronic obstructive pulmonary disease [Recovering/Resolving]
  - Hospitalisation [Recovering/Resolving]
  - Chronic obstructive pulmonary disease [Recovering/Resolving]

NARRATIVE: CASE EVENT DATE: 20151228
